FAERS Safety Report 6216923-7 (Version None)
Quarter: 2009Q2

REPORT INFORMATION
  Report Type: 
  Country: None (occurrence: None)
  Receive Date: 20090605
  Receipt Date: 20090528
  Transmission Date: 20091009
  Serious: Yes (Hospitalization)
  Sender: FDA-Public Use
  Company Number: JP-MERCK-0906USA00368

PATIENT
  Age: 77 Year
  Sex: Male

DRUGS (8)
  1. PEPCID [Suspect]
     Indication: GASTRIC ULCER
     Route: 048
  2. BLOPRESS [Concomitant]
     Route: 065
  3. LORELCO [Concomitant]
     Route: 065
  4. NORVASC [Concomitant]
     Route: 065
  5. PREDONINE [Concomitant]
     Route: 065
  6. ITRIZOLE [Concomitant]
     Route: 065
  7. ALENDRONATE SODIUM [Concomitant]
     Route: 048
  8. ZYLORIC [Concomitant]
     Route: 065

REACTIONS (1)
  - RHABDOMYOLYSIS [None]
